FAERS Safety Report 5258554-1 (Version None)
Quarter: 2007Q1

REPORT INFORMATION
  Report Type: 
  Country: None (occurrence: None)
  Receive Date: 20070305
  Receipt Date: 20070223
  Transmission Date: 20070707
  Serious: Yes (Hospitalization)
  Sender: FDA-Public Use
  Company Number: 2007SP003494

PATIENT

DRUGS (3)
  1. TEMODAL [Suspect]
     Indication: DRUG USE FOR UNKNOWN INDICATION
     Dosage: 150 MG/M2; QD;
  2. VINCRISTINE [Suspect]
     Indication: DRUG USE FOR UNKNOWN INDICATION
     Dosage: 1.5 MG/M2;
  3. CARBOPLATIN [Suspect]
     Indication: DRUG USE FOR UNKNOWN INDICATION
     Dosage: 150 MG/M2;

REACTIONS (3)
  - CRYPTOCOCCOSIS [None]
  - MENINGEAL DISORDER [None]
  - OPPORTUNISTIC INFECTION [None]
